FAERS Safety Report 21371025 (Version 2)
Quarter: 2022Q4

REPORT INFORMATION
  Report Type: Report from Study
  Country: CA (occurrence: CA)
  Receive Date: 20220923
  Receipt Date: 20221205
  Transmission Date: 20230112
  Serious: Yes (Other)
  Sender: FDA-Public Use
  Company Number: CA-BAUSCH-BL-2022-021953

PATIENT
  Sex: Female

DRUGS (3)
  1. CONTRAVE [Suspect]
     Active Substance: BUPROPION HYDROCHLORIDE\NALTREXONE HYDROCHLORIDE
     Indication: Weight control
     Dosage: 90/8 MG, 1 TABLET IN MORNING
     Route: 048
     Dates: start: 20220930, end: 2022
  2. CONTRAVE [Suspect]
     Active Substance: BUPROPION HYDROCHLORIDE\NALTREXONE HYDROCHLORIDE
     Dosage: 90/8 MG, 2 TABLET/DAY
     Route: 048
     Dates: start: 2022, end: 20220814
  3. CONTRAVE [Suspect]
     Active Substance: BUPROPION HYDROCHLORIDE\NALTREXONE HYDROCHLORIDE
     Dosage: 90/8 MG, 1-TAB QAM
     Route: 048
     Dates: start: 2022

REACTIONS (13)
  - Sudden onset of sleep [Unknown]
  - Stress at work [Unknown]
  - Hunger [Unknown]
  - Food craving [Unknown]
  - Hyperhidrosis [Recovered/Resolved]
  - Dizziness [Recovered/Resolved]
  - Fatigue [Recovered/Resolved]
  - Thirst [Recovered/Resolved]
  - Anxiety [Recovered/Resolved]
  - Feeling abnormal [Unknown]
  - Drug intolerance [Unknown]
  - Therapy cessation [Unknown]
  - Drug titration error [Unknown]

NARRATIVE: CASE EVENT DATE: 20220101
